FAERS Safety Report 7631788-4 (Version None)
Quarter: 2011Q3

REPORT INFORMATION
  Report Type: 
  Country: None (occurrence: None)
  Receive Date: 20110725
  Receipt Date: 20110419
  Transmission Date: 20111222
  Serious: Yes (Other)
  Sender: FDA-Public Use
  Company Number: US-BRISTOL-MYERS SQUIBB COMPANY-15620818

PATIENT
  Sex: Female

DRUGS (6)
  1. PREMARIN [Concomitant]
  2. VITAMIN D [Concomitant]
  3. VITAMIN E [Concomitant]
  4. FOLIC ACID [Concomitant]
  5. COUMADIN [Suspect]
     Indication: ATRIAL FIBRILLATION
     Dosage: USING FOR APPROX 20 YRS.
  6. SYNTHROID [Concomitant]

REACTIONS (1)
  - INTERNATIONAL NORMALISED RATIO DECREASED [None]
